FAERS Safety Report 25243550 (Version 4)
Quarter: 2025Q2

REPORT INFORMATION
  Report Type: Spontaneous
  Country: US (occurrence: US)
  Receive Date: 20250428
  Receipt Date: 20250616
  Transmission Date: 20250716
  Serious: Yes (Hospitalization, Other)
  Sender: HIKMA
  Company Number: US-HIKMA PHARMACEUTICALS USA INC.-US-H14001-25-03510

PATIENT
  Age: 72 Year
  Sex: Female
  Weight: 108.4 kg

DRUGS (9)
  1. CYCLOPHOSPHAMIDE [Suspect]
     Active Substance: CYCLOPHOSPHAMIDE
     Indication: Acute lymphocytic leukaemia
     Route: 042
     Dates: start: 20250214
  2. CYTARABINE [Suspect]
     Active Substance: CYTARABINE
     Route: 042
     Dates: start: 20250214
  3. CYTARABINE [Suspect]
     Active Substance: CYTARABINE
     Indication: Acute lymphocytic leukaemia
     Route: 037
     Dates: start: 20250214
  4. DEXAMETHASONE [Suspect]
     Active Substance: DEXAMETHASONE
     Indication: Acute lymphocytic leukaemia
     Route: 065
     Dates: start: 20250214
  5. INOTUZUMAB OZOGAMICIN [Suspect]
     Active Substance: INOTUZUMAB OZOGAMICIN
     Indication: Acute lymphocytic leukaemia
     Route: 065
     Dates: start: 20250214
  6. MESNA [Suspect]
     Active Substance: MESNA
     Indication: Acute lymphocytic leukaemia
     Route: 042
     Dates: start: 20250214
  7. METHOTREXATE SODIUM [Suspect]
     Active Substance: METHOTREXATE SODIUM
     Indication: Acute lymphocytic leukaemia
     Route: 037
     Dates: start: 20250214
  8. METHOTREXATE SODIUM [Suspect]
     Active Substance: METHOTREXATE SODIUM
     Route: 042
     Dates: start: 20250214
  9. VINCRISTINE SULFATE [Suspect]
     Active Substance: VINCRISTINE SULFATE
     Indication: Acute lymphocytic leukaemia
     Route: 042
     Dates: start: 20250214

REACTIONS (16)
  - Sepsis [Recovered/Resolved]
  - Asthenia [Unknown]
  - Hypoaesthesia [Unknown]
  - Dysstasia [Unknown]
  - Decreased appetite [Unknown]
  - Pallor [Unknown]
  - Jaundice [Unknown]
  - Anal incontinence [Unknown]
  - Urinary incontinence [Unknown]
  - Spinal column injury [Unknown]
  - Febrile neutropenia [Unknown]
  - Enterococcal infection [Unknown]
  - Neuropathy peripheral [Unknown]
  - Vitamin B6 decreased [Unknown]
  - Marrow hyperplasia [Unknown]
  - Subdural haematoma [Unknown]

NARRATIVE: CASE EVENT DATE: 20250302
